FAERS Safety Report 9165605 (Version 1)
Quarter: 2013Q1

REPORT INFORMATION
  Report Type: Spontaneous
  Country: US (occurrence: US)
  Receive Date: 20130315
  Receipt Date: 20130315
  Transmission Date: 20140127
  Serious: Yes (Death, Hospitalization)
  Sender: FDA-Public Use
  Company Number: US-BANPHARM-20130940

PATIENT
  Age: 17 Year
  Sex: Female

DRUGS (3)
  1. IBUPROFEN UNKNOWN PRODUCT [Suspect]
  2. SERTRALINE [Concomitant]
     Dosage: 150 MG, QD,
  3. ALBUTEROL [Concomitant]
     Route: 055

REACTIONS (13)
  - Unresponsive to stimuli [Fatal]
  - Multi-organ failure [Fatal]
  - Disseminated intravascular coagulation [Fatal]
  - Metabolic acidosis [Fatal]
  - Hyperkalaemia [Recovered/Resolved]
  - Electrocardiogram QT prolonged [Fatal]
  - Electrocardiogram QRS complex prolonged [Fatal]
  - Atrioventricular dissociation [Fatal]
  - Hypothermia [Fatal]
  - Blood glucose decreased [Fatal]
  - Vomiting [Fatal]
  - Blood pressure systolic decreased [Fatal]
  - Overdose [Fatal]
